FAERS Safety Report 19817372 (Version 3)
Quarter: 2021Q3

REPORT INFORMATION
  Report Type: Report from Study
  Country: CO (occurrence: CO)
  Receive Date: 20210910
  Receipt Date: 20210930
  Transmission Date: 20211014
  Serious: Yes (Other)
  Sender: FDA-Public Use
  Company Number: CO-REGENERON PHARMACEUTICALS, INC.-2021-84185

PATIENT

DRUGS (5)
  1. EYLEA [Suspect]
     Active Substance: AFLIBERCEPT
     Dosage: 2 MG, ONCE, BOTH EYES, SECOND DOSE
     Route: 031
     Dates: start: 20210114, end: 20210114
  2. EYLEA [Suspect]
     Active Substance: AFLIBERCEPT
     Indication: DIABETIC RETINAL OEDEMA
     Dosage: 2 MG, INTRAVITREALLY MONTHLY FOR 5 MONTHS, AND THEY EVERY 2 MONTHS; TOTAL NUMBER OF DOSES 3
     Route: 031
     Dates: start: 20201220
  3. EYLEA [Suspect]
     Active Substance: AFLIBERCEPT
     Dosage: 2 MG, ONCE, BOTH EYES, FIRST DOSE
     Route: 031
     Dates: start: 20201220, end: 20201220
  4. LATANOPROST. [Concomitant]
     Active Substance: LATANOPROST
     Indication: OCULAR HYPERTENSION
     Dosage: UNK
  5. EYLEA [Suspect]
     Active Substance: AFLIBERCEPT
     Dosage: 2 MG, ONCE, BOTH EYES, THIRD DOSE
     Route: 031
     Dates: start: 20210212, end: 20210212

REACTIONS (3)
  - Eye haemorrhage [Not Recovered/Not Resolved]
  - Inappropriate schedule of product administration [Not Recovered/Not Resolved]
  - Intraocular pressure increased [Not Recovered/Not Resolved]

NARRATIVE: CASE EVENT DATE: 20201220
